FAERS Safety Report 9269993 (Version 1)
Quarter: 2013Q2

REPORT INFORMATION
  Report Type: Spontaneous
  Country: GB (occurrence: GB)
  Receive Date: 20130503
  Receipt Date: 20130503
  Transmission Date: 20140414
  Serious: Yes (Life-Threatening, Hospitalization, Disabling, Other)
  Sender: FDA-Public Use
  Company Number: GB-SANOFI-AVENTIS-2013SA043241

PATIENT
  Age: 44 Year
  Sex: Female
  Weight: 130 kg

DRUGS (3)
  1. LEFLUNOMIDE [Suspect]
     Indication: RHEUMATOID ARTHRITIS
     Route: 048
     Dates: start: 201203, end: 201210
  2. SERTRALINE [Concomitant]
     Indication: DEPRESSION
     Route: 048
  3. ADCAL-D3 [Concomitant]
     Dosage: TO DATE.
     Route: 048

REACTIONS (10)
  - Dyspnoea [Not Recovered/Not Resolved]
  - Tooth loss [Not Recovered/Not Resolved]
  - Hypertension [Not Recovered/Not Resolved]
  - Pyrexia [Not Recovered/Not Resolved]
  - Fatigue [Not Recovered/Not Resolved]
  - Nausea [Not Recovered/Not Resolved]
  - Headache [Not Recovered/Not Resolved]
  - Asthenia [Not Recovered/Not Resolved]
  - Alopecia [Not Recovered/Not Resolved]
  - Interstitial lung disease [Not Recovered/Not Resolved]
